FAERS Safety Report 6936486-8 (Version None)
Quarter: 2010Q3

REPORT INFORMATION
  Report Type: 
  Country: None (occurrence: None)
  Receive Date: 20100818
  Receipt Date: 20100805
  Transmission Date: 20110219
  Serious: Yes (Other)
  Sender: FDA-Public Use
  Company Number: 016869

PATIENT
  Sex: Male
  Weight: 79.5 kg

DRUGS (3)
  1. CIMZIA [Suspect]
     Indication: CROHN'S DISEASE
     Dosage: (400 MG 1X/4 WEEKS SUBCUTANEOUS)
     Route: 058
     Dates: start: 20100601
  2. RIFAMPIN [Concomitant]
  3. PREDNISONE [Concomitant]

REACTIONS (14)
  - ABDOMINAL DISTENSION [None]
  - ABDOMINAL PAIN [None]
  - ADRENAL INSUFFICIENCY [None]
  - ARTHROPATHY [None]
  - DYSPNOEA [None]
  - EYE SWELLING [None]
  - FATIGUE [None]
  - FREQUENT BOWEL MOVEMENTS [None]
  - HEADACHE [None]
  - JOINT SWELLING [None]
  - LOCAL SWELLING [None]
  - OEDEMA PERIPHERAL [None]
  - PITUITARY TUMOUR [None]
  - RASH [None]
